FAERS Safety Report 19893734 (Version 2)
Quarter: 2021Q4

REPORT INFORMATION
  Report Type: Spontaneous
  Country: US (occurrence: US)
  Receive Date: 20210928
  Receipt Date: 20211011
  Transmission Date: 20220303
  Serious: No
  Sender: FDA-Public Use
  Company Number: US-PFIZER INC-2020025799

PATIENT
  Age: 12 Year
  Sex: Male

DRUGS (2)
  1. GENOTROPIN [Suspect]
     Active Substance: SOMATROPIN
     Indication: Short stature
     Dosage: 1.8 MG (1.9MG DOSE, HE GETS 1.8MG ONE DAY AND 2.0MG THE OTHER DAY ON AN ODD/EVEN BASES)
     Route: 058
  2. GENOTROPIN [Suspect]
     Active Substance: SOMATROPIN
     Dosage: 2 MG (1.9MG DOSE, HE GETS 1.8MG ONE DAY AND 2.0MG THE OTHER DAY ON AN ODD/EVEN BASES)
     Route: 058

REACTIONS (4)
  - Device information output issue [Unknown]
  - Poor quality device used [Unknown]
  - Product prescribing error [Unknown]
  - Incorrect dose administered by device [Unknown]

NARRATIVE: CASE EVENT DATE: 20200101
